FAERS Safety Report 5238219-2 (Version None)
Quarter: 2007Q1

REPORT INFORMATION
  Report Type: 
  Country: None (occurrence: None)
  Receive Date: 20070215
  Receipt Date: 20070214
  Transmission Date: 20070707
  Serious: Yes (Death, Life-Threatening, Hospitalization)
  Sender: FDA-Public Use
  Company Number: PHBS2006CZ17937

PATIENT
  Age: 59 Year
  Sex: Male

DRUGS (3)
  1. ZOMETA [Suspect]
     Indication: BONE DISORDER
     Dosage: 4 MG, EVERY 3 WEEKS
     Route: 042
     Dates: start: 20060914, end: 20061107
  2. IBUPROFEN [Concomitant]
     Route: 065
  3. ELIGARD [Concomitant]
     Route: 065

REACTIONS (7)
  - ANAEMIA [None]
  - DISSEMINATED INTRAVASCULAR COAGULATION [None]
  - EPISTAXIS [None]
  - HAEMATURIA [None]
  - PERIPHERAL CIRCULATORY FAILURE [None]
  - RECTAL HAEMORRHAGE [None]
  - URETHRAL HAEMORRHAGE [None]
